FAERS Safety Report 12708368 (Version 1)
Quarter: 2016Q3

REPORT INFORMATION
  Report Type: Spontaneous
  Country: GB (occurrence: GB)
  Receive Date: 20160901
  Receipt Date: 20160901
  Transmission Date: 20161109
  Serious: Yes (Disabling)
  Sender: FDA-Public Use
  Company Number: GB-TEVA-687463ACC

PATIENT
  Age: 50 Year
  Sex: Female

DRUGS (1)
  1. CHLORAMPHENICOL [Suspect]
     Active Substance: CHLORAMPHENICOL
     Dates: start: 20160810

REACTIONS (2)
  - Ocular discomfort [Recovering/Resolving]
  - Vision blurred [Unknown]

NARRATIVE: CASE EVENT DATE: 20160810
